FAERS Safety Report 5037600-4 (Version None)
Quarter: 2006Q2

REPORT INFORMATION
  Report Type: 
  Country: None (occurrence: None)
  Receive Date: 20060628
  Receipt Date: 20060201
  Transmission Date: 20061013
  Serious: Yes (Other)
  Sender: FDA-Public Use
  Company Number: JP-AVENTIS-200610458JP

PATIENT
  Age: 0 Year
  Sex: Male
  Weight: 0.2 kg

DRUGS (4)
  1. LANTUS [Suspect]
     Indication: DIABETES MELLITUS INSULIN-DEPENDENT
     Route: 064
     Dates: start: 20040720
  2. OPTICLIK (INSULIN INJECTION PEN) [Suspect]
  3. NOVORAPID [Concomitant]
     Dosage: DOSE: 58-64 UNITS/DAY
     Route: 064
     Dates: start: 20040517
  4. PENFILL N [Concomitant]

REACTIONS (3)
  - CAESAREAN SECTION [None]
  - DRUG EXPOSURE DURING PREGNANCY [None]
  - SMALL FOR DATES BABY [None]
